FAERS Safety Report 5872499-5 (Version None)
Quarter: 2008Q3

REPORT INFORMATION
  Report Type: 
  Country: None (occurrence: None)
  Receive Date: 20080829
  Receipt Date: 20080815
  Transmission Date: 20090109
  Serious: Yes (Other)
  Sender: FDA-Public Use
  Company Number: 2008S1014981

PATIENT
  Age: 50 Year
  Sex: Female

DRUGS (5)
  1. TILIDURA (VALORON N ) [Suspect]
     Indication: DRUG USE FOR UNKNOWN INDICATION
     Dosage: 2050 MG; ORAL
     Route: 048
  2. BACLOFEN [Suspect]
     Indication: DRUG USE FOR UNKNOWN INDICATION
     Dosage: 220 MG; ORAL
     Route: 048
  3. FUROSEMIDE [Suspect]
     Indication: DRUG USE FOR UNKNOWN INDICATION
     Dosage: 300 MG; ORAL
     Route: 048
  4. ALCOHOL (ETHANOL) [Suspect]
     Indication: DRUG USE FOR UNKNOWN INDICATION
     Dosage: ORAL
     Route: 048
  5. DULOXETINE [Suspect]
     Indication: DRUG USE FOR UNKNOWN INDICATION
     Dosage: 360 MG; ORAL
     Route: 048

REACTIONS (3)
  - INTENTIONAL OVERDOSE [None]
  - MYDRIASIS [None]
  - SOMNOLENCE [None]
